FAERS Safety Report 16275370 (Version 1)
Quarter: 2019Q2

REPORT INFORMATION
  Report Type: Spontaneous
  Country: CN (occurrence: CN)
  Receive Date: 20190504
  Receipt Date: 20190504
  Transmission Date: 20190711
  Serious: Yes (Hospitalization)
  Sender: FDA-Public Use
  Company Number: PHHY2019CN100236

PATIENT
  Sex: Female

DRUGS (1)
  1. COSENTYX [Suspect]
     Active Substance: SECUKINUMAB
     Indication: PSORIASIS
     Dosage: 150 MG, UNK
     Route: 058

REACTIONS (4)
  - Rebound psoriasis [Unknown]
  - Inappropriate schedule of product administration [Unknown]
  - Henoch-Schonlein purpura [Recovering/Resolving]
  - Diarrhoea [Recovering/Resolving]
